FAERS Safety Report 22186651 (Version 3)
Quarter: 2023Q2

REPORT INFORMATION
  Report Type: Spontaneous
  Country: US (occurrence: US)
  Receive Date: 20230407
  Receipt Date: 20230502
  Transmission Date: 20230721
  Serious: No
  Sender: FDA-Public Use
  Company Number: US-BIOMARINAP-US-2023-149469

PATIENT

DRUGS (1)
  1. PALYNZIQ [Suspect]
     Active Substance: PEGVALIASE-PQPZ
     Indication: Product used for unknown indication
     Dosage: 10 MILLIGRAM
     Route: 058

REACTIONS (6)
  - Flatulence [Unknown]
  - Abdominal infection [Unknown]
  - Renal cyst [Unknown]
  - Flank pain [Unknown]
  - Syringe issue [Unknown]
  - Injection site extravasation [Unknown]
